FAERS Safety Report 9680584 (Version 1)
Quarter: 2013Q4

REPORT INFORMATION
  Report Type: Spontaneous
  Country: US (occurrence: US)
  Receive Date: 20131111
  Receipt Date: 20131111
  Transmission Date: 20140711
  Serious: Yes (Other)
  Sender: FDA-Public Use
  Company Number: US-PFIZER INC-2013319633

PATIENT
  Age: 41 Year
  Sex: Female
  Weight: 57.6 kg

DRUGS (6)
  1. CELEBREX [Suspect]
     Indication: PAIN
     Dosage: 200 MG, DAILY
  2. PERCOCET [Concomitant]
     Indication: BACK PAIN
     Dosage: UNK
  3. FLEXERIL [Concomitant]
     Indication: BACK PAIN
     Dosage: UNK
  4. MOBIC [Concomitant]
     Indication: BACK PAIN
     Dosage: UNK
  5. TRAMADOL [Concomitant]
     Indication: BACK PAIN
     Dosage: UNK
  6. VICODIN [Concomitant]
     Indication: BACK PAIN
     Dosage: UNK

REACTIONS (5)
  - Hypertension [Unknown]
  - Nausea [Unknown]
  - Dizziness [Unknown]
  - Diarrhoea [Unknown]
  - Pain [Unknown]
